FAERS Safety Report 7119242-X (Version None)
Quarter: 2010Q4

REPORT INFORMATION
  Report Type: 
  Country: None (occurrence: None)
  Receive Date: 20101123
  Receipt Date: 20101103
  Transmission Date: 20110411
  Serious: Yes (Disabling)
  Sender: FDA-Public Use
  Company Number: NL-AMGEN-NLDSP2010003400

PATIENT

DRUGS (15)
  1. ENBREL [Suspect]
     Indication: RHEUMATOID ARTHRITIS
     Dosage: 50 MG, QWK
     Dates: start: 20101008
  2. THYRAX [Concomitant]
  3. SLOW-K [Concomitant]
  4. CHLORTHALIDONE [Concomitant]
  5. TRIAMTERENE [Concomitant]
  6. OXYCONTIN [Concomitant]
  7. SIMVASTATIN [Concomitant]
  8. ARCOXIA [Concomitant]
  9. FOLIC ACID [Concomitant]
  10. OMEPRAZOLE [Concomitant]
  11. ISONIAZID [Concomitant]
  12. METHOTREXATE [Concomitant]
  13. PYROXIN [Concomitant]
  14. TAMSULOSIN [Concomitant]
  15. LYRICA [Concomitant]

REACTIONS (3)
  - ABNORMAL SENSATION IN EYE [None]
  - INFECTION [None]
  - OEDEMA PERIPHERAL [None]
